FAERS Safety Report 9917155 (Version 1)
Quarter: 2014Q1

REPORT INFORMATION
  Report Type: Spontaneous
  Country: JP (occurrence: JP)
  Receive Date: 20140221
  Receipt Date: 20140221
  Transmission Date: 20141002
  Serious: Yes (Other)
  Sender: FDA-Public Use
  Company Number: JP-ELI_LILLY_AND_COMPANY-JP201402004580

PATIENT
  Sex: Male

DRUGS (1)
  1. HUMALOG LISPRO [Suspect]
     Indication: PRODUCT USED FOR UNKNOWN INDICATION
     Dosage: UNK
     Route: 058

REACTIONS (8)
  - Hyperglycaemia [Unknown]
  - Hypoglycaemia [Unknown]
  - Headache [Unknown]
  - Hypoaesthesia [Unknown]
  - Decreased appetite [Unknown]
  - Malaise [Unknown]
  - Asthenia [Unknown]
  - Insomnia [Unknown]
